FAERS Safety Report 12139911 (Version 1)
Quarter: 2016Q1

REPORT INFORMATION
  Report Type: Spontaneous
  Country: US (occurrence: None)
  Receive Date: 20160302
  Receipt Date: 20160302
  Transmission Date: 20160526
  Serious: No
  Sender: FDA-Public Use
  Company Number: None

PATIENT
  Age: 54 Year
  Sex: Female

DRUGS (1)
  1. OTREXUP [Suspect]
     Active Substance: METHOTREXATE
     Route: 058
     Dates: start: 20150918

REACTIONS (5)
  - Gastrooesophageal reflux disease [None]
  - Alopecia [None]
  - Hepatic function abnormal [None]
  - Nausea [None]
  - Gastric infection [None]
